FAERS Safety Report 8805543 (Version 2)
Quarter: 2012Q4

REPORT INFORMATION
  Report Type: Spontaneous
  Country: NL (occurrence: None)
  Receive Date: 20120917
  Receipt Date: 20120921
  Transmission Date: 20130627
  Serious: Yes (Hospitalization)
  Sender: FDA-Public Use
  Company Number: 2012AP002942

PATIENT
  Age: 62 Year
  Sex: Male

DRUGS (7)
  1. FUROSEMIDE (FUROSEMIDE) [Suspect]
     Indication: PERIPHERAL OEDEMA
     Route: 048
  2. FUROSEMIDE (FUROSEMIDE) [Suspect]
     Indication: DRUG ABUSE
     Route: 048
  3. FLUTICASONE PROPIONATE (FLUTICASONE PROPIONATE) [Concomitant]
  4. TIOTROPIUM BROMIDE (TIOTROPIUM BROMIDE) [Concomitant]
  5. SALMETEROL (SALMETEROL) [Concomitant]
  6. SPIRONOLACTONE (SPIRONOLACTONE) [Concomitant]
  7. PERINDOPRIL [Suspect]

REACTIONS (10)
  - Metabolic alkalosis [None]
  - Hypochloraemia [None]
  - Hypokalaemia [None]
  - Chronic obstructive pulmonary disease [None]
  - Oedema [None]
  - Hypertension [None]
  - Condition aggravated [None]
  - Drug abuse [None]
  - Ventricular tachycardia [None]
  - Glomerular filtration rate decreased [None]
